FAERS Safety Report 5298775-5 (Version None)
Quarter: 2007Q2

REPORT INFORMATION
  Report Type: 
  Country: None (occurrence: None)
  Receive Date: 20070417
  Receipt Date: 20070413
  Transmission Date: 20071010
  Serious: Yes (Hospitalization)
  Sender: FDA-Public Use
  Company Number: JP-BRISTOL-MYERS SQUIBB COMPANY-13715487

PATIENT
  Age: 55 Year
  Sex: Female

DRUGS (6)
  1. TAXOL [Suspect]
     Indication: OVARIAN CANCER
     Route: 041
     Dates: start: 20050225
  2. PARAPLATIN [Suspect]
     Indication: OVARIAN CANCER
     Route: 041
     Dates: start: 20050201
  3. RANDA [Suspect]
     Indication: OVARIAN CANCER
     Route: 041
  4. TAXOTERE [Suspect]
     Indication: OVARIAN CANCER
     Dates: start: 20060601
  5. ENDOXAN [Concomitant]
  6. DOXORUBICIN HCL [Concomitant]

REACTIONS (2)
  - HYPOCALCAEMIA [None]
  - HYPOMAGNESAEMIA [None]
